FAERS Safety Report 18882933 (Version 1)
Quarter: 2021Q1

REPORT INFORMATION
  Report Type: Spontaneous
  Country: MG (occurrence: MG)
  Receive Date: 20210212
  Receipt Date: 20210212
  Transmission Date: 20210420
  Serious: Yes (Life-Threatening, Hospitalization, Disabling, Other)
  Sender: FDA-Public Use
  Company Number: MG-LUPIN PHARMACEUTICALS INC.-2021-01639

PATIENT
  Age: 7 Year
  Sex: Male
  Weight: 40 kg

DRUGS (2)
  1. DICLOFENAC SODIUM. [Suspect]
     Active Substance: DICLOFENAC SODIUM
     Indication: POST PROCEDURAL COMPLICATION
     Dosage: UNK (ADMINISTERED TO THE VENTROMEDIAL REGION OF HIS RIGHT THIGH, WHICH WAS ILLICITLY PERFORMED BY TH
     Route: 030
     Dates: start: 20180915
  2. BENZATHINE PENICILLIN [Suspect]
     Active Substance: PENICILLIN G BENZATHINE
     Indication: POST PROCEDURAL COMPLICATION
     Dosage: UNK (ADMINISTERED TO THE VENTROMEDIAL REGION OF HIS RIGHT THIGH, WHICH WAS ILLICITLY PERFORMED BY TH
     Route: 030
     Dates: start: 20180915

REACTIONS (7)
  - Monoplegia [Not Recovered/Not Resolved]
  - Embolia cutis medicamentosa [Recovering/Resolving]
  - Skin necrosis [Recovering/Resolving]
  - Product administered by wrong person [Unknown]
  - Compartment syndrome [Recovering/Resolving]
  - Peripheral ischaemia [Recovering/Resolving]
  - Intentional product misuse [Unknown]

NARRATIVE: CASE EVENT DATE: 20180915
